FAERS Safety Report 9838201 (Version 2)
Quarter: 2014Q2

REPORT INFORMATION
  Report Type: Spontaneous
  Country: US (occurrence: None)
  Receive Date: 20131205
  Receipt Date: 20140604
  Transmission Date: 20141212
  Serious: No
  Sender: FDA-Public Use
  Company Number: 163-POMAL-13100101

PATIENT
  Age: 80 Year
  Sex: Female

DRUGS (1)
  1. POMALYST (POMALIDOMIDE) (4 MILLIGRAM, CAPSULES) [Suspect]
     Indication: PLASMA CELL MYELOMA
     Dosage: 4 MG, 14 IN 21 D
     Route: 048
     Dates: start: 20130918

REACTIONS (6)
  - Abdominal pain upper [None]
  - Abdominal discomfort [None]
  - Diarrhoea [None]
  - Rash [None]
  - Drug intolerance [None]
  - Rash [None]
